FAERS Safety Report 7804180-7 (Version None)
Quarter: 2011Q4

REPORT INFORMATION
  Report Type: 
  Country: None (occurrence: None)
  Receive Date: 20111010
  Receipt Date: 20110927
  Transmission Date: 20120403
  Serious: Yes (Hospitalization)
  Sender: FDA-Public Use
  Company Number: FR-AMGEN-FRASP2011046849

PATIENT
  Age: 65 Year
  Sex: Male

DRUGS (4)
  1. ENBREL [Suspect]
     Indication: ANKYLOSING SPONDYLITIS
     Dosage: 50 MG, WEEKLY
     Route: 058
     Dates: start: 20110723, end: 20110908
  2. BREXIN                             /00500404/ [Concomitant]
     Dosage: 20 MG, 1X/DAY AT MIDDAY
  3. NEXIUM [Concomitant]
     Dosage: 20 MG, 1X/DAY IN THE EVENING
  4. ACETAMINOPHEN [Concomitant]
     Dosage: 1 G EVERY 6 HOURS IF PAINS

REACTIONS (2)
  - APPENDICITIS [None]
  - INFECTIOUS PERITONITIS [None]
